FAERS Safety Report 5479312-9 (Version None)
Quarter: 2007Q4

REPORT INFORMATION
  Report Type: 
  Country: None (occurrence: None)
  Receive Date: 20071003
  Receipt Date: 20070924
  Transmission Date: 20080405
  Serious: No
  Sender: FDA-Public Use
  Company Number: TPA2007A01977

PATIENT
  Age: 39 Year
  Sex: Male
  Weight: 87.9978 kg

DRUGS (3)
  1. ROZEREM [Suspect]
     Indication: INSOMNIA
     Dosage: 8 MG, HS, PER ORAL; 16 MG, HS, PER ORAL
     Route: 048
     Dates: start: 20070101
  2. ROZEREM [Suspect]
     Indication: INSOMNIA
     Dosage: 8 MG, HS, PER ORAL; 16 MG, HS, PER ORAL
     Route: 048
     Dates: start: 20070603
  3. MULTIPLE MEDICATIONS (ALL OTHER THERAPEUTIC PRODUCTS) [Concomitant]

REACTIONS (2)
  - DRUG EFFECT DECREASED [None]
  - TREATMENT NONCOMPLIANCE [None]
